FAERS Safety Report 5320857-X (Version None)
Quarter: 2007Q2

REPORT INFORMATION
  Report Type: 
  Country: None (occurrence: None)
  Receive Date: 20070503
  Receipt Date: 20070417
  Transmission Date: 20071010
  Serious: Yes (Other)
  Sender: FDA-Public Use
  Company Number: DSA_29024_2006

PATIENT
  Sex: Female

DRUGS (2)
  1. TAVOR /00273201/ (TAVOR) [Suspect]
     Indication: ANXIETY DISORDER
     Dosage: (2.5 MG QD ORAL)
     Dates: start: 19910101
  2. TAVOR /00273201/ (TAVOR) [Suspect]
     Indication: SLEEP DISORDER
     Dosage: (2.5 MG QD ORAL)
     Dates: start: 19910101

REACTIONS (6)
  - DISTURBANCE IN ATTENTION [None]
  - DRUG INTOLERANCE [None]
  - GAIT DISTURBANCE [None]
  - MEMORY IMPAIRMENT [None]
  - MUSCLE TWITCHING [None]
  - VERTIGO POSITIONAL [None]
